FAERS Safety Report 10921775 (Version 1)
Quarter: 2015Q1

REPORT INFORMATION
  Report Type: Spontaneous
  Country: TR (occurrence: TR)
  Receive Date: 20150317
  Receipt Date: 20150317
  Transmission Date: 20150721
  Serious: Yes (Other)
  Sender: FDA-Public Use
  Company Number: TR-ACTAVIS-2015-04661

PATIENT
  Age: 45 Year
  Sex: Male

DRUGS (1)
  1. ACYCLOVIR (UNKNOWN) [Suspect]
     Active Substance: ACYCLOVIR
     Indication: HERPES SIMPLEX
     Dosage: 10 MG/KG, DAILY
     Route: 042

REACTIONS (1)
  - Nephropathy toxic [Recovered/Resolved]
